FAERS Safety Report 5338083-7 (Version None)
Quarter: 2007Q2

REPORT INFORMATION
  Report Type: 
  Country: None (occurrence: None)
  Receive Date: 20070327
  Receipt Date: 20061215
  Transmission Date: 20071010
  Serious: Yes (Other)
  Sender: FDA-Public Use
  Company Number: 233854

PATIENT
  Sex: Female

DRUGS (3)
  1. AVASTIN [Suspect]
     Indication: OVARIAN CANCER
     Dosage: Q3W, INTRAVENOUS
     Route: 042
  2. GEMCITABINE [Concomitant]
  3. CARBOPLATIN [Concomitant]

REACTIONS (1)
  - PLATELET COUNT DECREASED [None]
